FAERS Safety Report 19688413 (Version 3)
Quarter: 2021Q4

REPORT INFORMATION
  Report Type: Spontaneous
  Country: BR (occurrence: BR)
  Receive Date: 20210811
  Receipt Date: 20211004
  Transmission Date: 20220303
  Serious: Yes (Other)
  Sender: FDA-Public Use
  Company Number: BR-SA-SAC20210809000159

PATIENT
  Age: 75 Year
  Sex: Male
  Weight: 82 kg

DRUGS (9)
  1. LANTUS [Suspect]
     Active Substance: INSULIN GLARGINE
     Indication: Diabetes mellitus
     Dosage: 36 IU, QD
     Route: 058
     Dates: start: 2011, end: 202103
  2. LANTUS [Suspect]
     Active Substance: INSULIN GLARGINE
     Dosage: 26 IU, Q12H
     Route: 058
     Dates: start: 202103, end: 20210804
  3. LANTUS [Suspect]
     Active Substance: INSULIN GLARGINE
     Dosage: 26 IU, QD
     Route: 058
  4. NOVORAPID [Concomitant]
     Active Substance: INSULIN ASPART
     Indication: Diabetes mellitus
     Dosage: 10 IU, Q8H
     Route: 058
     Dates: start: 2011, end: 20210804
  5. SIMVASTATIN [Concomitant]
     Active Substance: SIMVASTATIN
     Indication: Blood cholesterol abnormal
     Dosage: 40 MG
     Route: 065
  6. SIMVASTATIN [Concomitant]
     Active Substance: SIMVASTATIN
     Indication: Angiopathy
  7. CLOPIDOGREL [Concomitant]
     Active Substance: CLOPIDOGREL BISULFATE
     Indication: Anticoagulant therapy
     Dosage: UNK
     Route: 065
  8. ASPIRIN [Concomitant]
     Active Substance: ASPIRIN
     Indication: Anticoagulant therapy
     Dosage: UNK
     Route: 065
  9. ENALAPRIL MALEATE [Concomitant]
     Active Substance: ENALAPRIL MALEATE
     Indication: Hypertension
     Dosage: 10 MG
     Route: 065

REACTIONS (9)
  - Diabetic metabolic decompensation [Recovered/Resolved]
  - Condition aggravated [Recovered/Resolved]
  - COVID-19 [Recovered/Resolved]
  - Skin cancer [Recovered/Resolved]
  - Blood pressure abnormal [Recovered/Resolved]
  - Renal disorder [Recovered/Resolved]
  - Product prescribing issue [Unknown]
  - Product storage error [Unknown]
  - Multiple use of single-use product [Unknown]

NARRATIVE: CASE EVENT DATE: 20210301
